FAERS Safety Report 16811145 (Version 1)
Quarter: 2019Q3

REPORT INFORMATION
  Report Type: Spontaneous
  Country: JP (occurrence: JP)
  Receive Date: 20190916
  Receipt Date: 20190916
  Transmission Date: 20191005
  Serious: Yes (Other)
  Sender: FDA-Public Use
  Company Number: JP-PFIZER INC-2019389708

PATIENT
  Age: 83 Year
  Sex: Female

DRUGS (1)
  1. TOVIAZ [Suspect]
     Active Substance: FESOTERODINE FUMARATE

REACTIONS (4)
  - Urinary incontinence [Unknown]
  - Bladder dilatation [Unknown]
  - Dysuria [Unknown]
  - Sensory loss [Unknown]

NARRATIVE: CASE EVENT DATE: 20190908
